FAERS Safety Report 5032340-X (Version None)
Quarter: 2006Q2

REPORT INFORMATION
  Report Type: 
  Country: None (occurrence: None)
  Receive Date: 20060508
  Receipt Date: 20060214
  Transmission Date: 20061013
  Serious: Yes (Hospitalization)
  Sender: FDA-Public Use
  Company Number: 230838K06USA

PATIENT
  Age: 70 Year
  Sex: Female

DRUGS (4)
  1. REBIF [Suspect]
     Indication: MULTIPLE SCLEROSIS
     Dosage: 22 MCG, 3 IN 1 WEEKS, SUBCUTANEOUS
     Route: 058
     Dates: start: 20050923
  2. ZOLOFT [Concomitant]
  3. SYNTHROID [Concomitant]
  4. DIOVAN [Concomitant]

REACTIONS (1)
  - SHOULDER PAIN [None]
